FAERS Safety Report 9736025 (Version 1)
Quarter: 2013Q4

REPORT INFORMATION
  Report Type: Spontaneous
  Country: US (occurrence: None)
  Receive Date: 20131204
  Receipt Date: 20131204
  Transmission Date: 20140711
  Serious: Yes (Hospitalization)
  Sender: FDA-Public Use
  Company Number: UTC-041260

PATIENT
  Age: 69 Year
  Sex: Male

DRUGS (1)
  1. TYVASO [Suspect]
     Indication: PULMONARY ARTERIAL HYPERTENSION
     Dosage: 18 TO 54 MCG (4 IN 1
     Dates: start: 20131118, end: 201311

REACTIONS (5)
  - Heart rate increased [None]
  - Dyspnoea [None]
  - Pulmonary fibrosis [None]
  - Tremor [None]
  - Condition aggravated [None]
